FAERS Safety Report 9947949 (Version 2)
Quarter: 2014Q1

REPORT INFORMATION
  Report Type: Report from Study
  Country: US (occurrence: US)
  Receive Date: 20140303
  Receipt Date: 20140303
  Transmission Date: 20141002
  Serious: No
  Sender: FDA-Public Use
  Company Number: US-ABBVIE-13P-163-1039744-00

PATIENT
  Age: 27 Year
  Sex: Female

DRUGS (5)
  1. HUMIRA [Suspect]
     Indication: COLITIS ULCERATIVE
     Route: 058
     Dates: start: 20121013
  2. BIRTH CONTROL [Concomitant]
     Indication: PRODUCT USED FOR UNKNOWN INDICATION
  3. AMITRIPTYLINE [Concomitant]
     Indication: MIGRAINE
  4. PROPRANOLOL [Concomitant]
     Indication: MIGRAINE
  5. MAXALT [Concomitant]
     Indication: MIGRAINE

REACTIONS (3)
  - Injection site pruritus [Not Recovered/Not Resolved]
  - Injection site pruritus [Recovered/Resolved]
  - Injection site erythema [Not Recovered/Not Resolved]
